FAERS Safety Report 4413255-4 (Version None)
Quarter: 2004Q3

REPORT INFORMATION
  Report Type: 
  Country: None (occurrence: None)
  Receive Date: 20040802
  Receipt Date: 20040706
  Transmission Date: 20050211
  Serious: Yes (Death, Other)
  Sender: FDA-Public Use
  Company Number: PHBS2004JP09186

PATIENT
  Age: 80 Year
  Sex: Male
  Weight: 63 kg

DRUGS (8)
  1. LOCHOL [Suspect]
     Indication: HYPERLIPIDAEMIA
     Dosage: 20 MG/DAY
     Route: 048
     Dates: start: 20030710
  2. DIOVAN [Concomitant]
     Indication: HYPERTENSION
     Dosage: 80 MG, UNK
     Route: 048
     Dates: start: 20030612
  3. OMEPRAL [Concomitant]
     Indication: DYSPEPSIA
     Dosage: 10 MG, UNK
     Route: 048
     Dates: start: 20030612
  4. CALSLOT [Concomitant]
     Indication: HYPERTENSION
     Dosage: 20 MG, UNK
     Route: 048
     Dates: start: 20030612
  5. GLYBURIDE [Concomitant]
     Indication: BLOOD GLUCOSE DECREASED
     Dosage: 1.25 MG, UNK
     Route: 048
     Dates: end: 20031022
  6. AMARYL [Concomitant]
     Indication: BLOOD GLUCOSE DECREASED
     Dosage: 2 MG, UNK
     Route: 048
     Dates: start: 20031022, end: 20040528
  7. GASCON [Concomitant]
     Indication: CONSTIPATION
     Dosage: 120 MG, UNK
     Route: 048
     Dates: start: 20021121
  8. HARNAL [Concomitant]
     Indication: BENIGN PROSTATIC HYPERPLASIA
     Dosage: UNK, UNK
     Dates: start: 20000405

REACTIONS (7)
  - BLOOD CREATININE INCREASED [None]
  - BLOOD UREA INCREASED [None]
  - HYPERGLYCAEMIA [None]
  - HYPOGLYCAEMIA [None]
  - LOSS OF CONSCIOUSNESS [None]
  - RENAL FAILURE CHRONIC [None]
  - WEIGHT INCREASED [None]
